FAERS Safety Report 5410419-8 (Version None)
Quarter: 2007Q3

REPORT INFORMATION
  Report Type: 
  Country: None (occurrence: None)
  Receive Date: 20070808
  Receipt Date: 20070730
  Transmission Date: 20080115
  Serious: Yes (Disabling)
  Sender: FDA-Public Use
  Company Number: LTI2007A00192

PATIENT
  Age: 58 Year
  Sex: Female

DRUGS (8)
  1. ACTOS [Suspect]
     Indication: TYPE 2 DIABETES MELLITUS
     Dosage: 45 MG (45 MG, 1 IN 1 D) ORAL
     Route: 048
     Dates: start: 20051201, end: 20070501
  2. GLYBURIDE [Concomitant]
  3. LUDIOMIL [Concomitant]
  4. HAVLANE (LOPRAZOLAM MESILATE) [Concomitant]
  5. EFFEXOR [Concomitant]
  6. LESCOL [Concomitant]
  7. GINKOR FORT (GINKGO BILOBA) [Concomitant]
  8. CALCIDOSE D3 (CALCIUM CARBONATE) [Concomitant]

REACTIONS (7)
  - DIABETIC NEUROPATHY [None]
  - ERYTHEMA [None]
  - FOOT DEFORMITY [None]
  - FOOT FRACTURE [None]
  - HYPOAESTHESIA [None]
  - INFLAMMATION [None]
  - OSTEOLYSIS [None]
